FAERS Safety Report 7808375-8 (Version None)
Quarter: 2011Q4

REPORT INFORMATION
  Report Type: 
  Country: None (occurrence: None)
  Receive Date: 20111011
  Receipt Date: 20111011
  Transmission Date: 20120403
  Serious: Yes (Life-Threatening, Hospitalization)
  Sender: FDA-Public Use
  Company Number: None

PATIENT
  Age: 68 Year
  Sex: Male
  Weight: 116.5 kg

DRUGS (2)
  1. WARFARIN SODIUM [Suspect]
     Indication: ATRIAL FIBRILLATION
     Dates: start: 20070103, end: 20111004
  2. CITALOPRAM [Suspect]
     Indication: DEPRESSION
     Dosage: 40 MG HS PO
     Route: 048
     Dates: start: 20070409, end: 20111004

REACTIONS (1)
  - GASTRIC HAEMORRHAGE [None]
